FAERS Safety Report 16057257 (Version 1)
Quarter: 2019Q1

REPORT INFORMATION
  Report Type: Spontaneous
  Country: US (occurrence: US)
  Receive Date: 20190311
  Receipt Date: 20190311
  Transmission Date: 20190418
  Serious: No
  Sender: FDA-Public Use
  Company Number: US-PFIZER INC-2019097225

PATIENT

DRUGS (2)
  1. LYRICA [Suspect]
     Active Substance: PREGABALIN
     Indication: DIABETIC NEUROPATHY
  2. LYRICA [Suspect]
     Active Substance: PREGABALIN
     Indication: TYPE 1 DIABETES MELLITUS
     Dosage: 150 MG, 2X/DAY

REACTIONS (3)
  - Pain [Unknown]
  - Product use issue [Unknown]
  - Oedema [Recovered/Resolved]
